FAERS Safety Report 17713071 (Version 1)
Quarter: 2020Q2

REPORT INFORMATION
  Report Type: Spontaneous
  Country: US (occurrence: US)
  Receive Date: 20200427
  Receipt Date: 20200427
  Transmission Date: 20200714
  Serious: No
  Sender: FDA-Public Use
  Company Number: None

PATIENT
  Age: 41 Year
  Sex: Female
  Weight: 101.7 kg

DRUGS (4)
  1. OXCARBAMAZEPINE [Concomitant]
     Active Substance: OXCARBAZEPINE
  2. SUNOSI [Suspect]
     Active Substance: SOLRIAMFETOL
     Indication: SOMNOLENCE
     Route: 048
     Dates: start: 20200418
  3. DULOXETINE. [Concomitant]
     Active Substance: DULOXETINE
  4. CPAP MACHINE [Concomitant]

REACTIONS (1)
  - Memory impairment [None]

NARRATIVE: CASE EVENT DATE: 20200418
